FAERS Safety Report 4827816-1 (Version None)
Quarter: 2005Q4

REPORT INFORMATION
  Report Type: 
  Country: None (occurrence: None)
  Receive Date: 20051110
  Receipt Date: 20040104
  Transmission Date: 20060501
  Serious: Yes (Hospitalization)
  Sender: FDA-Public Use
  Company Number: 04USA0012

PATIENT
  Age: 60 Year
  Sex: Female
  Weight: 70 kg

DRUGS (6)
  1. GLIADEL [Suspect]
     Indication: GLIOBLASTOMA MULTIFORME
     Dosage: 7.7 MG, 1 IN 8 ONCE, INTRACEREBRAL
     Route: 018
     Dates: start: 20030819
  2. DILANTIN [Suspect]
  3. TEMODAR [Suspect]
     Indication: GLIOBLASTOMA MULTIFORME
     Dosage: 200 MG/M*2
     Dates: start: 20031129
  4. VANCOMYCIN [Concomitant]
  5. CEFTAZIDIME SODIUM [Concomitant]
  6. FLUCONAZOLE [Concomitant]

REACTIONS (6)
  - ANTICONVULSANT TOXICITY [None]
  - BRAIN ABSCESS [None]
  - DEEP VEIN THROMBOSIS [None]
  - DYSPNOEA [None]
  - FALL [None]
  - HEAD INJURY [None]
